FAERS Safety Report 7772578-1 (Version None)
Quarter: 2011Q3

REPORT INFORMATION
  Report Type: 
  Country: None (occurrence: None)
  Receive Date: 20110921
  Receipt Date: 20110921
  Transmission Date: 20111222
  Serious: Yes (Hospitalization)
  Sender: FDA-Public Use
  Company Number: None

PATIENT
  Sex: Female
  Weight: 93.1 kg

DRUGS (2)
  1. IRINOTECAN HCL [Suspect]
     Dosage: 380 MG
  2. TEMOZOLOMIDE [Suspect]
     Dosage: 1425 MG

REACTIONS (12)
  - MUSCULAR WEAKNESS [None]
  - HEADACHE [None]
  - FALL [None]
  - DIZZINESS [None]
  - NAUSEA [None]
  - VOMITING [None]
  - HYPOTHYROIDISM [None]
  - HYPOPHAGIA [None]
  - LEUKOPENIA [None]
  - NEUTROPENIA [None]
  - DIARRHOEA [None]
  - INFECTION [None]
